FAERS Safety Report 5284083-5 (Version None)
Quarter: 2007Q1

REPORT INFORMATION
  Report Type: 
  Country: None (occurrence: None)
  Receive Date: 20070327
  Receipt Date: 20070312
  Transmission Date: 20070707
  Serious: Yes (Other)
  Sender: FDA-Public Use
  Company Number: C-07-0008

PATIENT
  Age: 12 Year
  Sex: Female
  Weight: 26.7622 kg

DRUGS (4)
  1. CARBAMAZEPINE [Suspect]
     Indication: EPILEPSY
     Dosage: 15ML MORNING, 10ML NOON, 15ML IGHT VIA PEGTUBE.
     Dates: start: 20070309
  2. THYROID TAB [Concomitant]
  3. LAMICTAL [Concomitant]
  4. ZONEGRAN [Concomitant]

REACTIONS (8)
  - ACCIDENTAL OVERDOSE [None]
  - DIZZINESS [None]
  - DRUG ADMINISTRATION ERROR [None]
  - DRUG LEVEL ABOVE THERAPEUTIC [None]
  - FALL [None]
  - INCORRECT DOSE ADMINISTERED [None]
  - MYDRIASIS [None]
  - PHARMACEUTICAL PRODUCT COMPLAINT [None]
